FAERS Safety Report 24539115 (Version 1)
Quarter: 2024Q4

REPORT INFORMATION
  Report Type: Spontaneous
  Country: US (occurrence: None)
  Receive Date: 20241022
  Receipt Date: 20241022
  Transmission Date: 20250115
  Serious: Yes (Death, Hospitalization)
  Sender: Public
  Company Number: None

PATIENT
  Age: 44 Year
  Sex: Female

DRUGS (3)
  1. AMBRISENTAN [Suspect]
     Active Substance: AMBRISENTAN
     Indication: Pulmonary arterial hypertension
     Dosage: FREQUENCY : DAILY;?
     Route: 048
     Dates: start: 20190509, end: 20241019
  2. TADALAFIL [Suspect]
     Active Substance: TADALAFIL
  3. MILRINONE [Suspect]
     Active Substance: MILRINONE

REACTIONS (10)
  - Tachypnoea [None]
  - Tachycardia [None]
  - Agitation [None]
  - Hypoxia [None]
  - Arrhythmia [None]
  - Extrasystoles [None]
  - Atrial fibrillation [None]
  - Hypotension [None]
  - Metabolic acidosis [None]
  - Shock [None]

NARRATIVE: CASE EVENT DATE: 20241013
